FAERS Safety Report 7206438-1 (Version None)
Quarter: 2010Q4

REPORT INFORMATION
  Report Type: 
  Country: None (occurrence: None)
  Receive Date: 20101217
  Receipt Date: 20101206
  Transmission Date: 20110411
  Serious: Yes (Other)
  Sender: FDA-Public Use
  Company Number: 2010MA005159

PATIENT
  Age: 77 Year
  Sex: Female

DRUGS (2)
  1. METFORMIN HCL [Suspect]
     Indication: BLOOD GLUCOSE INCREASED
     Dosage: 500 MG;BID;PO
     Route: 048
     Dates: start: 20100601
  2. MENADION [Concomitant]

REACTIONS (3)
  - ANAEMIA [None]
  - ASTHENIA [None]
  - NAUSEA [None]
